FAERS Safety Report 24606548 (Version 1)
Quarter: 2024Q4

REPORT INFORMATION
  Report Type: Spontaneous
  Country: DE (occurrence: DE)
  Receive Date: 20241112
  Receipt Date: 20241112
  Transmission Date: 20250114
  Serious: Yes (Life-Threatening, Hospitalization)
  Sender: ACCORD
  Company Number: DE-MLMSERVICE-20241030-PI233742-00218-1

PATIENT
  Sex: Female

DRUGS (2)
  1. METHOTREXATE [Suspect]
     Active Substance: METHOTREXATE
     Indication: Product used for unknown indication
     Dosage: WEEKLY INTAKE OF 15 MG
  2. FOLIC ACID [Concomitant]
     Active Substance: FOLIC ACID
     Dosage: 5 MG FOLIC ACID ON THE FOLLOWING DAY

REACTIONS (4)
  - Pancytopenia [Unknown]
  - Sepsis [Unknown]
  - Toxicity to various agents [Unknown]
  - Incorrect dosage administered [Unknown]
